FAERS Safety Report 10032954 (Version 1)
Quarter: 2014Q1

REPORT INFORMATION
  Report Type: Spontaneous
  Country: US (occurrence: US)
  Receive Date: 20140324
  Receipt Date: 20140324
  Transmission Date: 20141002
  Serious: Yes (Other)
  Sender: FDA-Public Use
  Company Number: US-ELI_LILLY_AND_COMPANY-US201310010420

PATIENT
  Sex: Female

DRUGS (1)
  1. CYMBALTA [Suspect]
     Indication: FIBROMYALGIA
     Dosage: UNK, UNKNOWN
     Route: 065

REACTIONS (14)
  - Suicidal ideation [Unknown]
  - Depression [Unknown]
  - Irritable bowel syndrome [Unknown]
  - Mood swings [Unknown]
  - Disturbance in attention [Unknown]
  - Dry mouth [Unknown]
  - Chills [Unknown]
  - Photosensitivity reaction [Unknown]
  - Night sweats [Unknown]
  - Tinnitus [Unknown]
  - Paraesthesia [Unknown]
  - Dizziness [Unknown]
  - Anxiety [Unknown]
  - Drug withdrawal syndrome [Unknown]
